FAERS Safety Report 17439343 (Version 1)
Quarter: 2020Q1

REPORT INFORMATION
  Report Type: Spontaneous
  Country: US (occurrence: US)
  Receive Date: 20200219
  Receipt Date: 20200219
  Transmission Date: 20200409
  Serious: Yes (Hospitalization)
  Sender: FDA-Public Use
  Company Number: None

PATIENT
  Sex: Female

DRUGS (2)
  1. SYMDEKO [Suspect]
     Active Substance: IVACAFTOR\TEZACAFTOR
     Route: 048
     Dates: start: 20190213, end: 20200201
  2. KITABIS PAK [Suspect]
     Active Substance: TOBRAMYCIN
     Route: 055

REACTIONS (1)
  - Helicobacter infection [None]
